FAERS Safety Report 6050498-0 (Version None)
Quarter: 2009Q1

REPORT INFORMATION
  Report Type: 
  Country: None (occurrence: None)
  Receive Date: 20090126
  Receipt Date: 20090115
  Transmission Date: 20090719
  Serious: Yes (Other)
  Sender: FDA-Public Use
  Company Number: PHEH2009US00834

PATIENT
  Sex: Female

DRUGS (1)
  1. RECLAST [Suspect]

REACTIONS (9)
  - DYSSTASIA [None]
  - HEADACHE [None]
  - INFLUENZA LIKE ILLNESS [None]
  - JOINT INJURY [None]
  - MUSCULOSKELETAL DISCOMFORT [None]
  - PAIN [None]
  - PYREXIA [None]
  - ROTATOR CUFF REPAIR [None]
  - THROMBOSIS [None]
